FAERS Safety Report 9193019 (Version 2)
Quarter: 2013Q1

REPORT INFORMATION
  Report Type: Spontaneous
  Country: ZA (occurrence: ZA)
  Receive Date: 20130327
  Receipt Date: 20130327
  Transmission Date: 20140127
  Serious: Yes (Death)
  Sender: FDA-Public Use
  Company Number: ZA-SANOFI-AVENTIS-200613577EU

PATIENT
  Age: 83 Year
  Sex: Male

DRUGS (10)
  1. FUROSEMIDE [Suspect]
     Dosage: DOSE AS USED: DOSAGE UNKNOWN
  2. PLAVIX [Suspect]
     Indication: CORONARY ARTERIAL STENT INSERTION
     Route: 048
     Dates: start: 20060505, end: 20060527
  3. CIPROBAY [Suspect]
     Dosage: DOSE AS USED: DOSAGE UNKNOWN
  4. CARDURA [Suspect]
     Dosage: DOSE AS USED: DOSAGE UNKNOWN
  5. ZIAK [Suspect]
     Dosage: DOSE AS USED: DOSAGE UNKNOWN
  6. ESOMEPRAZOLE [Suspect]
     Dosage: DOSE AS USED: DOSAGE UNKNOWN
  7. ECOTRIN [Suspect]
     Dosage: DOSE AS USED: DOSAGE UNKNOWN
  8. ULSANIC [Suspect]
     Dosage: DOSE AS USED: DOSAGE UNKNOWN
  9. SIMVASTATIN [Suspect]
     Dosage: DOSE AS USED: DOSAGE UNKNOWN
  10. NO MENTION OF CONCOMITANT DRUG [Concomitant]

REACTIONS (3)
  - Hepatic failure [Fatal]
  - Jaundice [Fatal]
  - Rash [Fatal]
